FAERS Safety Report 21119289 (Version 3)
Quarter: 2022Q3

REPORT INFORMATION
  Report Type: Spontaneous
  Country: US (occurrence: US)
  Receive Date: 20220722
  Receipt Date: 20220929
  Transmission Date: 20221027
  Serious: No
  Sender: FDA-Public Use
  Company Number: US-GLAXOSMITHKLINE-US2022108656

PATIENT
  Age: 57 Year
  Sex: Female

DRUGS (4)
  1. ZEJULA [Suspect]
     Active Substance: NIRAPARIB
     Indication: Ovarian cancer
     Dosage: 300 MG, QD
     Dates: start: 20220625
  2. ZEJULA [Suspect]
     Active Substance: NIRAPARIB
     Dosage: 200 MG, QD
  3. DILAUDID [Suspect]
     Active Substance: HYDROMORPHONE HYDROCHLORIDE
     Indication: Product used for unknown indication
     Dosage: UNK
     Route: 042
  4. NORCO [Suspect]
     Active Substance: ACETAMINOPHEN\HYDROCODONE BITARTRATE
     Indication: Product used for unknown indication
     Dosage: UNK

REACTIONS (13)
  - Heart rate increased [Unknown]
  - Candida infection [Unknown]
  - Pain [Recovering/Resolving]
  - Illness [Unknown]
  - Vomiting [Unknown]
  - Abdominal discomfort [Unknown]
  - Insomnia [Unknown]
  - Dysphagia [Unknown]
  - Fatigue [Unknown]
  - Blood pressure systolic increased [Recovered/Resolved]
  - Tongue discolouration [Unknown]
  - Gingival discolouration [Unknown]
  - Oral mucosal discolouration [Unknown]

NARRATIVE: CASE EVENT DATE: 20220804
